FAERS Safety Report 9688659 (Version 1)
Quarter: 2013Q4

REPORT INFORMATION
  Report Type: Spontaneous
  Country: DE (occurrence: DE)
  Receive Date: 20131114
  Receipt Date: 20131114
  Transmission Date: 20140711
  Serious: Yes (Hospitalization)
  Sender: FDA-Public Use
  Company Number: GXKR2013DE003549

PATIENT
  Age: 68 Year
  Sex: Male
  Weight: 85 kg

DRUGS (4)
  1. FLECAINIDE [Suspect]
     Indication: ATRIAL FIBRILLATION
     Dosage: 50 MG, BID
     Route: 048
     Dates: start: 20121119, end: 20130215
  2. MARCUMAR [Concomitant]
  3. METOPROLOL [Concomitant]
  4. TAMSULOSIN [Concomitant]
     Dosage: 0.4 MG, QD
     Route: 048

REACTIONS (1)
  - Organising pneumonia [Recovered/Resolved]
